FAERS Safety Report 9471914 (Version 4)
Quarter: 2014Q1

REPORT INFORMATION
  Report Type: Report from Study
  Country: BR (occurrence: BR)
  Receive Date: 20130823
  Receipt Date: 20140207
  Transmission Date: 20141002
  Serious: Yes (Hospitalization, Other)
  Sender: FDA-Public Use
  Company Number: BR-ROCHE-1264160

PATIENT
  Sex: Female
  Weight: 72 kg

DRUGS (9)
  1. ACTEMRA [Suspect]
     Indication: RHEUMATOID ARTHRITIS
     Route: 065
     Dates: start: 201005
  2. CLONAZEPAM [Concomitant]
     Indication: DEPRESSION
  3. NAPRIX [Concomitant]
     Indication: HYPERTENSION
  4. HYDROCHLOROTHIAZIDE [Concomitant]
     Indication: HYPERTENSION
  5. OMEPRAZOLE [Concomitant]
     Indication: GASTRIC DISORDER
  6. PAROXETINE HYDROCHLORIDE [Concomitant]
     Indication: DEPRESSION
  7. FLUOXETINE [Concomitant]
     Indication: DEPRESSION
  8. IBUPROFEN [Concomitant]
     Indication: RHEUMATOID ARTHRITIS
  9. PREDNISONE [Concomitant]
     Indication: RHEUMATOID ARTHRITIS

REACTIONS (11)
  - Arthropathy [Recovered/Resolved]
  - Arthropathy [Recovered/Resolved]
  - Osteoarthritis [Not Recovered/Not Resolved]
  - Abasia [Unknown]
  - Limb deformity [Unknown]
  - Bone loss [Unknown]
  - Rheumatoid arthritis [Unknown]
  - Fall [Unknown]
  - Device breakage [Not Recovered/Not Resolved]
  - Nephrolithiasis [Unknown]
  - Drug dose omission [Unknown]
